FAERS Safety Report 15787653 (Version 1)
Quarter: 2019Q1

REPORT INFORMATION
  Report Type: Spontaneous
  Country: None (occurrence: CL)
  Receive Date: 20190103
  Receipt Date: 20190103
  Transmission Date: 20190417
  Serious: Yes (Other)
  Sender: FDA-Public Use
  Company Number: CL-POPULATION COUNCIL, INC.-2060836

PATIENT
  Age: 18 Year
  Sex: Female

DRUGS (1)
  1. JADELLE [Suspect]
     Active Substance: LEVONORGESTREL
     Route: 059
     Dates: start: 201811, end: 201812

REACTIONS (2)
  - Drug ineffective [None]
  - Pregnancy with implant contraceptive [Not Recovered/Not Resolved]
